FAERS Safety Report 11968869 (Version 1)
Quarter: 2016Q1

REPORT INFORMATION
  Report Type: Report from Study
  Country: IT (occurrence: IT)
  Receive Date: 20160128
  Receipt Date: 20160128
  Transmission Date: 20160526
  Serious: Yes (Other)
  Sender: FDA-Public Use
  Company Number: IT-ACCORD-037150

PATIENT
  Age: 45 Year
  Sex: Male

DRUGS (2)
  1. GEMCITABINE/GEMCITABINE HYDROCHLORIDE [Suspect]
     Active Substance: GEMCITABINE\GEMCITABINE HYDROCHLORIDE
     Indication: PANCREATIC CARCINOMA METASTATIC
     Dosage: ON DAY 1, DAY 8 AND DAY 15, 3 IN 28D
     Dates: start: 201501, end: 201504
  2. ABRAXANE [Suspect]
     Active Substance: PACLITAXEL
     Indication: PANCREATIC CARCINOMA METASTATIC
     Dosage: ON DAY 1, DAY 8 AND DAY 15, 3 IN 28D
     Route: 048
     Dates: start: 20150101, end: 20150401

REACTIONS (2)
  - Pancreatic carcinoma metastatic [None]
  - Disease progression [Unknown]
